FAERS Safety Report 8567637-X (Version None)
Quarter: 2012Q3

REPORT INFORMATION
  Report Type: 
  Country: None (occurrence: None)
  Receive Date: 20120803
  Receipt Date: 20120727
  Transmission Date: 20120928
  Serious: Yes (Hospitalization, Disabling)
  Sender: FDA-Public Use
  Company Number: BR-BAYER-2012-053032

PATIENT
  Age: 37 Year
  Sex: Female

DRUGS (2)
  1. BETASERON [Suspect]
     Indication: MULTIPLE SCLEROSIS
     Dosage: 1 ML, QOD
     Route: 058
     Dates: start: 20120122
  2. BETAJECT COMFORT [Suspect]
     Indication: DEVICE THERAPY

REACTIONS (21)
  - RETCHING [None]
  - VOMITING [None]
  - TINNITUS [None]
  - MUSCULAR WEAKNESS [None]
  - INJECTION SITE INDURATION [None]
  - PARAESTHESIA [None]
  - INJECTION SITE PAIN [None]
  - INJECTION SITE ERYTHEMA [None]
  - ASTHENIA [None]
  - FATIGUE [None]
  - BONE PAIN [None]
  - INJECTION SITE EXTRAVASATION [None]
  - INJECTION SITE DISCOLOURATION [None]
  - DIPLEGIA [None]
  - INJECTION SITE SCAB [None]
  - INJECTION SITE HAEMORRHAGE [None]
  - MEMORY IMPAIRMENT [None]
  - PAIN IN EXTREMITY [None]
  - MULTIPLE SCLEROSIS RELAPSE [None]
  - NECK PAIN [None]
  - TREMOR [None]
